FAERS Safety Report 7910467-X (Version None)
Quarter: 2011Q4

REPORT INFORMATION
  Report Type: 
  Country: None (occurrence: None)
  Receive Date: 20111111
  Receipt Date: 20111101
  Transmission Date: 20120403
  Serious: Yes (Hospitalization)
  Sender: FDA-Public Use
  Company Number: PHEH2011US07096

PATIENT
  Sex: Female

DRUGS (6)
  1. GLUCOSAMINE [Concomitant]
     Dosage: UNK UKN, UNK
  2. GILENYA [Suspect]
     Indication: MULTIPLE SCLEROSIS
     Dosage: 0.5 MG, QD
     Route: 048
     Dates: start: 20110405, end: 20110915
  3. CALCIUM WITH VITAMIN D [Concomitant]
     Dosage: UNK UKN, UNK
  4. MULTI-VITAMINS [Concomitant]
     Dosage: UNK UKN, UNK
  5. FISH OIL [Concomitant]
     Dosage: UNK UKN, UNK
  6. BACLOFEN [Concomitant]
     Dosage: 40 MG, UNK

REACTIONS (3)
  - BLOOD PRESSURE INCREASED [None]
  - MULTIPLE SCLEROSIS RELAPSE [None]
  - DRUG INEFFECTIVE [None]
